FAERS Safety Report 6942260-9 (Version None)
Quarter: 2010Q3

REPORT INFORMATION
  Report Type: 
  Country: None (occurrence: None)
  Receive Date: 20100820
  Receipt Date: 20100811
  Transmission Date: 20110219
  Serious: Yes (Hospitalization)
  Sender: FDA-Public Use
  Company Number: 017083

PATIENT

DRUGS (1)
  1. LACOSAMIDE [Suspect]

REACTIONS (2)
  - CONVULSION [None]
  - HAEMATOMA [None]
